FAERS Safety Report 21445622 (Version 2)
Quarter: 2022Q4

REPORT INFORMATION
  Report Type: Spontaneous
  Country: US (occurrence: US)
  Receive Date: 20221012
  Receipt Date: 20221022
  Transmission Date: 20230112
  Serious: No
  Sender: FDA-Public Use
  Company Number: US-ABBVIE-4149789

PATIENT
  Age: 75 Year
  Sex: Female
  Weight: 68.038 kg

DRUGS (11)
  1. SKYRIZI [Suspect]
     Active Substance: RISANKIZUMAB-RZAA
     Indication: Psoriasis
     Route: 058
     Dates: start: 20220701, end: 20220729
  2. SKYRIZI [Suspect]
     Active Substance: RISANKIZUMAB-RZAA
     Dosage: UNKNOWN
  3. SYNTHROID [Concomitant]
     Active Substance: LEVOTHYROXINE SODIUM
     Indication: Thyroid disorder
  4. PREDNISONE [Concomitant]
     Active Substance: PREDNISONE
     Indication: Rash
  5. Covid 19 Vaccine [Concomitant]
     Indication: COVID-19 immunisation
     Dosage: PFIZER
     Route: 030
     Dates: start: 20210129, end: 20210129
  6. Covid 19 Vaccine [Concomitant]
     Indication: COVID-19 immunisation
     Dosage: PFIZER
     Route: 030
     Dates: start: 20210826, end: 20210826
  7. Covid 19 Vaccine [Concomitant]
     Indication: COVID-19 immunisation
     Dosage: MODERNA
     Route: 030
     Dates: start: 20220914, end: 20220914
  8. Covid 19 Vaccine [Concomitant]
     Indication: COVID-19 immunisation
     Dosage: PFIZER
     Route: 030
     Dates: start: 20220302, end: 20220302
  9. Covid 19 Vaccine [Concomitant]
     Indication: COVID-19 immunisation
     Dosage: PFIZER
     Route: 030
     Dates: start: 20210108, end: 20210108
  10. ESTRADIOL [Concomitant]
     Active Substance: ESTRADIOL
     Indication: Blood oestrogen
  11. AMLODIPINE [Concomitant]
     Active Substance: AMLODIPINE BESYLATE
     Indication: Blood pressure measurement

REACTIONS (2)
  - Rash [Recovering/Resolving]
  - Urticaria [Unknown]

NARRATIVE: CASE EVENT DATE: 20220701
